FAERS Safety Report 18991953 (Version 3)
Quarter: 2021Q2

REPORT INFORMATION
  Report Type: Spontaneous
  Country: IN (occurrence: IN)
  Receive Date: 20210310
  Receipt Date: 20210520
  Transmission Date: 20210717
  Serious: Yes (Hospitalization, Other)
  Sender: FDA-Public Use
  Company Number: IN-PFIZER INC-2020491379

PATIENT
  Age: 65 Year
  Sex: Male

DRUGS (4)
  1. RAZO D [Concomitant]
     Dosage: 1 DF, DAILY
  2. FEFOL Z [Concomitant]
     Dosage: 1 DF, DAILY
  3. SUTENT [Suspect]
     Active Substance: SUNITINIB MALATE
     Indication: GASTROINTESTINAL STROMAL TUMOUR
     Dosage: 50 MG, 1X/DAY (50 MG FOR 14 DAYS ON, 1 WEEK OFF)
     Route: 048
     Dates: start: 20201205
  4. COQ [Concomitant]
     Dosage: 1 DF, DAILY

REACTIONS (3)
  - Blood count abnormal [Unknown]
  - Ascites [Unknown]
  - Abdominal distension [Unknown]
